FAERS Safety Report 18201097 (Version 1)
Quarter: 2020Q3

REPORT INFORMATION
  Report Type: Spontaneous
  Country: FR (occurrence: FR)
  Receive Date: 20200827
  Receipt Date: 20200827
  Transmission Date: 20201103
  Serious: Yes (Hospitalization)
  Sender: FDA-Public Use
  Company Number: FR-ACCORD-197501

PATIENT
  Age: 20 Year
  Sex: Male

DRUGS (3)
  1. CLONAZEPAM. [Suspect]
     Active Substance: CLONAZEPAM
     Indication: PRODUCT USED FOR UNKNOWN INDICATION
  2. PREGABALIN. [Suspect]
     Active Substance: PREGABALIN
     Indication: PRODUCT USED FOR UNKNOWN INDICATION
  3. SERESTA [Suspect]
     Active Substance: OXAZEPAM
     Indication: PRODUCT USED FOR UNKNOWN INDICATION

REACTIONS (4)
  - Drug use disorder [Unknown]
  - Altered state of consciousness [Recovered/Resolved]
  - Miosis [Recovered/Resolved]
  - Agitation [Recovered/Resolved]
